FAERS Safety Report 19602918 (Version 1)
Quarter: 2021Q3

REPORT INFORMATION
  Report Type: Spontaneous
  Country: BE (occurrence: BE)
  Receive Date: 20210723
  Receipt Date: 20210723
  Transmission Date: 20211014
  Serious: Yes (Other)
  Sender: FDA-Public Use
  Company Number: BE-JUBILANT CADISTA PHARMACEUTICALS-2021JUB00216

PATIENT
  Age: 77 Year
  Sex: Female

DRUGS (2)
  1. ATEZOLIZUMAB. [Concomitant]
     Active Substance: ATEZOLIZUMAB
     Dosage: 1200 MG EVERY 3 WEEKS
     Route: 065
  2. METHYLPREDNISOLONE. [Suspect]
     Active Substance: METHYLPREDNISOLONE
     Indication: IMMUNE RECONSTITUTION INFLAMMATORY SYNDROME
     Route: 042

REACTIONS (1)
  - Disease progression [Unknown]
